FAERS Safety Report 19132837 (Version 18)
Quarter: 2025Q2

REPORT INFORMATION
  Report Type: Report from Study
  Country: CA (occurrence: CA)
  Receive Date: 20210414
  Receipt Date: 20250609
  Transmission Date: 20250717
  Serious: Yes (Other)
  Sender: TAKEDA
  Company Number: CA-TAKEDA-2021TUS022050

PATIENT
  Age: 77 Year
  Sex: Male

DRUGS (6)
  1. VEDOLIZUMAB [Suspect]
     Active Substance: VEDOLIZUMAB
     Indication: Crohn^s disease
  2. VEDOLIZUMAB [Suspect]
     Active Substance: VEDOLIZUMAB
     Indication: Crohn^s disease
     Dosage: 108 MILLIGRAM, Q2WEEKS
     Dates: start: 20210728
  3. CHOLESTYRAMINE [Concomitant]
     Active Substance: CHOLESTYRAMINE
  4. DILTIAZEM [Concomitant]
     Active Substance: DILTIAZEM
     Indication: Blood pressure abnormal
  5. FOSINOPRIL [Concomitant]
     Active Substance: FOSINOPRIL
     Indication: Blood pressure abnormal
  6. IMURAN [Concomitant]
     Active Substance: AZATHIOPRINE

REACTIONS (9)
  - Crohn^s disease [Recovering/Resolving]
  - Therapeutic product effect decreased [Unknown]
  - Diarrhoea [Unknown]
  - Abdominal discomfort [Unknown]
  - Gastrointestinal pain [Unknown]
  - Inappropriate schedule of product administration [Unknown]
  - Abdominal pain [Unknown]
  - Abdominal distension [Unknown]
  - Flatulence [Unknown]

NARRATIVE: CASE EVENT DATE: 20210405
